FAERS Safety Report 6134397-1 (Version None)
Quarter: 2009Q1

REPORT INFORMATION
  Report Type: 
  Country: None (occurrence: None)
  Receive Date: 20090327
  Receipt Date: 20090318
  Transmission Date: 20090719
  Serious: Yes (Other)
  Sender: FDA-Public Use
  Company Number: GB-JNJFOC-20090302532

PATIENT
  Sex: Female

DRUGS (9)
  1. TOPAMAX [Suspect]
     Indication: TORTICOLLIS
     Route: 048
  2. AMLODIPINE [Concomitant]
     Indication: HYPERTENSION
  3. DIAZEPAM [Concomitant]
     Indication: TORTICOLLIS
  4. ZOLPIDEM [Concomitant]
     Indication: INSOMNIA
  5. AMIODARONE HCL [Concomitant]
     Indication: ATRIAL FIBRILLATION
  6. CLOPIDOGREL [Concomitant]
     Indication: ANTIPLATELET THERAPY
  7. EYEDROPS [Concomitant]
     Indication: GLAUCOMA
  8. RAMIPRIL [Concomitant]
     Indication: HYPERTENSION
  9. SIMVASTATIN [Concomitant]
     Indication: HYPERCHOLESTEROLAEMIA

REACTIONS (2)
  - OPEN ANGLE GLAUCOMA [None]
  - WEIGHT DECREASED [None]
